FAERS Safety Report 5160208-7 (Version None)
Quarter: 2006Q4

REPORT INFORMATION
  Report Type: 
  Country: None (occurrence: None)
  Receive Date: 20061120
  Receipt Date: 20061108
  Transmission Date: 20070319
  Serious: Yes (Hospitalization)
  Sender: FDA-Public Use
  Company Number: 2006BI016305

PATIENT
  Age: 48 Year
  Sex: Female

DRUGS (6)
  1. AVONEX [Suspect]
     Indication: MULTIPLE SCLEROSIS
     Dosage: 30 UG, QW; IM
     Route: 030
  2. AVONEX [Suspect]
     Indication: MULTIPLE SCLEROSIS
     Dosage: 30 UG QW; IM
     Route: 030
     Dates: start: 20060301
  3. COGENTIN [Concomitant]
  4. LEXAPRO [Concomitant]
  5. ATIVAN [Concomitant]
  6. RESPERADOL [Concomitant]

REACTIONS (2)
  - DYSARTHRIA [None]
  - HEMIPLEGIA [None]
